FAERS Safety Report 4804450-0 (Version None)
Quarter: 2005Q4

REPORT INFORMATION
  Report Type: 
  Country: None (occurrence: None)
  Receive Date: 20051020
  Receipt Date: 20050728
  Transmission Date: 20060501
  Serious: Yes (Death, Other)
  Sender: FDA-Public Use
  Company Number: 2005UW11240

PATIENT
  Age: 20022 Day
  Sex: Female
  Weight: 44.9 kg

DRUGS (3)
  1. IRESSA [Suspect]
     Indication: BREAST CANCER
     Route: 048
     Dates: start: 20041006, end: 20041101
  2. BEVACIZUMAB [Suspect]
     Indication: BREAST CANCER
     Dosage: 10MG/KG
     Route: 042
     Dates: start: 20040927
  3. LEXAPRO [Concomitant]
     Route: 048

REACTIONS (8)
  - ANOREXIA [None]
  - ASTHENIA [None]
  - CELLULITIS [None]
  - DIARRHOEA [None]
  - DRUG INTERACTION [None]
  - RASH [None]
  - SEPSIS [None]
  - SOMNOLENCE [None]
